FAERS Safety Report 17440755 (Version 2)
Quarter: 2020Q1

REPORT INFORMATION
  Report Type: Spontaneous
  Country: ES (occurrence: ES)
  Receive Date: 20200220
  Receipt Date: 20200229
  Transmission Date: 20200409
  Serious: Yes (Hospitalization, Other)
  Sender: FDA-Public Use
  Company Number: ES-BRISTOL-MYERS SQUIBB COMPANY-BMS-2020-014212

PATIENT
  Age: 58 Year
  Sex: Male

DRUGS (1)
  1. TRIGON DEPOT [Suspect]
     Active Substance: TRIAMCINOLONE ACETONIDE
     Indication: CHALAZION
     Dosage: 0.5 MILLILITER, 1 TOTAL
     Route: 065

REACTIONS (3)
  - Chorioretinopathy [Recovered/Resolved]
  - Intentional product use issue [Unknown]
  - Detachment of retinal pigment epithelium [Recovered/Resolved]
